FAERS Safety Report 6142684-6 (Version None)
Quarter: 2009Q2

REPORT INFORMATION
  Report Type: 
  Country: None (occurrence: None)
  Receive Date: 20090403
  Receipt Date: 20090330
  Transmission Date: 20091009
  Serious: Yes (Death, Hospitalization)
  Sender: FDA-Public Use
  Company Number: US-CELGENEUS-163-20785-09032090

PATIENT
  Sex: Male
  Weight: 15.3 kg

DRUGS (4)
  1. THALOMID [Suspect]
     Indication: EPENDYMOMA
     Route: 048
     Dates: start: 20081212, end: 20081220
  2. CELECOXIB [Suspect]
     Indication: EPENDYMOMA
     Route: 048
     Dates: start: 20081212, end: 20081220
  3. FENOBIBRATE [Suspect]
     Indication: EPENDYMOMA
     Route: 048
     Dates: start: 20081212, end: 20081220
  4. CYCLOPHOSPHAMIDE [Suspect]
     Indication: EPENDYMOMA
     Route: 048
     Dates: start: 20081212, end: 20081220

REACTIONS (2)
  - HYDROCEPHALUS [None]
  - NEOPLASM PROGRESSION [None]
